FAERS Safety Report 5160963-6 (Version None)
Quarter: 2006Q4

REPORT INFORMATION
  Report Type: 
  Country: None (occurrence: None)
  Receive Date: 20061130
  Receipt Date: 20060406
  Transmission Date: 20070319
  Serious: No
  Sender: FDA-Public Use
  Company Number: US-BRISTOL-MYERS SQUIBB COMPANY-13339577

PATIENT
  Age: 75 Year
  Sex: Male

DRUGS (2)
  1. AVALIDE [Suspect]
  2. NORVASC [Concomitant]

REACTIONS (5)
  - EYE SWELLING [None]
  - LIP SWELLING [None]
  - PHARYNGEAL OEDEMA [None]
  - PRURITUS [None]
  - URTICARIA [None]
